FAERS Safety Report 10095369 (Version 2)
Quarter: 2014Q2

REPORT INFORMATION
  Report Type: Spontaneous
  Country: US (occurrence: US)
  Receive Date: 20140422
  Receipt Date: 20140422
  Transmission Date: 20141212
  Serious: No
  Sender: FDA-Public Use
  Company Number: US-GILEAD-2013-0075546

PATIENT
  Sex: Female

DRUGS (5)
  1. LETAIRIS [Suspect]
     Indication: PULMONARY VASCULAR RESISTANCE ABNORMALITY
     Route: 048
     Dates: start: 20130430, end: 20130503
  2. LETAIRIS [Suspect]
     Indication: PULMONARY HYPERTENSION
  3. LETAIRIS [Suspect]
     Indication: RIGHT VENTRICULAR FAILURE
  4. LETAIRIS [Suspect]
     Indication: RIGHT VENTRICULAR FAILURE
  5. LETAIRIS [Suspect]
     Indication: PULMONARY ARTERIAL HYPERTENSION

REACTIONS (1)
  - Weight increased [Unknown]
